FAERS Safety Report 5398762-2 (Version None)
Quarter: 2007Q3

REPORT INFORMATION
  Report Type: 
  Country: None (occurrence: None)
  Receive Date: 20070726
  Receipt Date: 20061204
  Transmission Date: 20080115
  Serious: No
  Sender: FDA-Public Use
  Company Number: US-AMGEN-KDL202244

PATIENT
  Sex: Female

DRUGS (13)
  1. EPOGEN [Suspect]
     Indication: RENAL FAILURE CHRONIC
     Route: 042
     Dates: start: 20060501
  2. VITAMIN CAP [Concomitant]
  3. IBUPROFEN [Concomitant]
  4. HYDROXYZINE [Concomitant]
  5. TORADOL [Concomitant]
  6. LASIX [Concomitant]
  7. METOPROLOL SUCCINATE [Concomitant]
  8. RELPAX [Concomitant]
  9. QUININE [Concomitant]
     Dates: end: 20060101
  10. ZANTAC 150 [Concomitant]
  11. RENAGEL [Concomitant]
  12. ZOLOFT [Concomitant]
  13. ACTIVASE [Concomitant]

REACTIONS (5)
  - BLOOD IRON DECREASED [None]
  - BLOOD PHOSPHORUS INCREASED [None]
  - DYSPNOEA [None]
  - MALAISE [None]
  - THERAPEUTIC RESPONSE DECREASED [None]
